FAERS Safety Report 8949368 (Version 1)
Quarter: 2012Q4

REPORT INFORMATION
  Report Type: Report from Study
  Country: NL (occurrence: ID)
  Receive Date: 20121206
  Receipt Date: 20121206
  Transmission Date: 20130627
  Serious: Yes (Death)
  Sender: FDA-Public Use
  Company Number: NL-BAYER-2012-128066

PATIENT
  Age: 27 Year
  Sex: Male

DRUGS (5)
  1. MOXIFLOXACIN ORAL [Suspect]
     Indication: TUBERCULOUS MENINGITIS
  2. RIFADIN [Suspect]
     Indication: TUBERCULOUS MENINGITIS
     Dosage: 600 mg, UNK
     Route: 042
  3. ISONIAZID [Concomitant]
     Indication: TUBERCULOUS MENINGITIS
  4. PYRAZINAMIDE [Concomitant]
     Indication: TUBERCULOUS MENINGITIS
  5. CORTICOSTEROIDS [Concomitant]

REACTIONS (1)
  - Anaphylactic shock [Fatal]
